FAERS Safety Report 9778846 (Version 7)
Quarter: 2014Q2

REPORT INFORMATION
  Report Type: Report from Study
  Country: US (occurrence: US)
  Receive Date: 20131223
  Receipt Date: 20140417
  Transmission Date: 20141212
  Serious: Yes (Hospitalization)
  Sender: FDA-Public Use
  Company Number: US-JNJFOC-20131211123

PATIENT
  Age: 58 Year
  Sex: Female
  Weight: 65.32 kg

DRUGS (13)
  1. SIMPONI [Suspect]
     Indication: RHEUMATOID ARTHRITIS
     Route: 058
     Dates: start: 20131204
  2. SIMPONI [Suspect]
     Indication: RHEUMATOID ARTHRITIS
     Dosage: 50MG/0.5ML
     Route: 058
     Dates: start: 20130303, end: 20131016
  3. METHOTREXATE [Suspect]
     Indication: RHEUMATOID ARTHRITIS
     Route: 048
     Dates: start: 20131204
  4. METHOTREXATE [Suspect]
     Indication: RHEUMATOID ARTHRITIS
     Dosage: 20  YEARS??APPROXIMATELY 1995
     Route: 048
     Dates: start: 1995, end: 20131111
  5. CLINORIL [Concomitant]
     Indication: OSTEOARTHRITIS
     Dosage: 20  YEARS??APPROXIMAELY 1995
     Route: 048
     Dates: start: 1995
  6. CLINORIL [Concomitant]
     Indication: INFLAMMATION
     Dosage: 20  YEARS??APPROXIMAELY 1995
     Route: 048
     Dates: start: 1995
  7. CLINORIL [Concomitant]
     Indication: RHEUMATOID ARTHRITIS
     Dosage: 20  YEARS??APPROXIMAELY 1995
     Route: 048
     Dates: start: 1995
  8. FOLIC ACID [Concomitant]
     Indication: RED BLOOD CELL COUNT
     Dosage: APPROXIMATELY 2005
     Route: 048
     Dates: start: 2005
  9. FOLIC ACID [Concomitant]
     Indication: RHEUMATOID ARTHRITIS
     Dosage: APPROXIMATELY 2005
     Route: 048
     Dates: start: 2005
  10. CALCIUM WITH VITAMIN D [Concomitant]
     Indication: OSTEOPENIA
     Dosage: APPROXIMATELY 2005
     Route: 048
     Dates: start: 2005
  11. CALCIUM WITH VITAMIN D [Concomitant]
     Indication: RHEUMATOID ARTHRITIS
     Dosage: APPROXIMATELY 2005
     Route: 048
     Dates: start: 2005
  12. MULTIVITAMINS [Concomitant]
     Indication: ROUTINE HEALTH MAINTENANCE
     Dosage: APPROXIMATELY 2010
     Route: 048
     Dates: start: 2010
  13. PRILOSEC [Concomitant]
     Indication: GASTROOESOPHAGEAL REFLUX DISEASE
     Dosage: AT 5 YEARS??APPROXIMATELY 2010
     Route: 048
     Dates: start: 2010

REACTIONS (6)
  - Pyonephrosis [Recovered/Resolved]
  - Calculus ureteric [Recovered/Resolved]
  - Sepsis [Recovered/Resolved]
  - Confusional state [Recovered/Resolved]
  - Urinary tract infection [Recovered/Resolved]
  - Hydronephrosis [Unknown]
